FAERS Safety Report 4316584-8 (Version None)
Quarter: 2004Q1

REPORT INFORMATION
  Report Type: 
  Country: None (occurrence: None)
  Receive Date: 20040312
  Receipt Date: 20040226
  Transmission Date: 20041129
  Serious: Yes (Hospitalization)
  Sender: FDA-Public Use
  Company Number: 2004013364

PATIENT
  Age: 69 Year
  Sex: Male
  Weight: 79.3795 kg

DRUGS (11)
  1. COOL MINT LISTERINE (EUCALYPTOL, MENTHOL, METHYL SALICYLATE, THYMOL) [Suspect]
     Indication: INTENTIONAL OVERDOSE
     Dosage: 1.5 LITER BOTTLE, EVERY 1-2 WEEKS, ORAL
     Route: 048
  2. ESOMEPRAZOLE [Concomitant]
  3. CAPTOPRIL [Concomitant]
  4. DYAZIDE [Concomitant]
  5. CLOPIDOGREL BISULFATE [Concomitant]
  6. CELECOXIB [Concomitant]
  7. PAROXETINE HCL [Concomitant]
  8. ASCORBIC ACID [Concomitant]
  9. TOCOPHEROL CONCENTRATE CAP [Concomitant]
  10. MAGNESIUM [Concomitant]
  11. MULTIVITAMIN [Concomitant]

REACTIONS (4)
  - BALANCE DISORDER [None]
  - FEELING ABNORMAL [None]
  - INTENTIONAL MISUSE [None]
  - TRANSIENT ISCHAEMIC ATTACK [None]
